FAERS Safety Report 16625345 (Version 1)
Quarter: 2019Q3

REPORT INFORMATION
  Report Type: Spontaneous
  Country: US (occurrence: US)
  Receive Date: 20190724
  Receipt Date: 20190724
  Transmission Date: 20191004
  Serious: No
  Sender: FDA-Public Use
  Company Number: None

PATIENT
  Age: 64 Year
  Sex: Female
  Weight: 58.5 kg

DRUGS (10)
  1. VITAMIN C [Concomitant]
     Active Substance: ASCORBIC ACID
  2. CRANBERRY EXTRACT [Concomitant]
     Active Substance: CRANBERRY JUICE
  3. LEVOTHROYXINE [Concomitant]
  4. MULTIPLE VITAMIN FOR WOMEN OVER 50 [Concomitant]
  5. E [Concomitant]
  6. NATURAL OPHTHALMICS WOMEN^S TEAR STIMULATION HOMEOPATHIS EYE DROPS [Suspect]
     Active Substance: HOMEOPATHICS
     Indication: DRY EYE
     Dosage: ?          QUANTITY:2 DROP(S);?
     Route: 047
     Dates: start: 20190517, end: 20190531
  7. CALCIUM [Concomitant]
     Active Substance: CALCIUM
  8. MAGNESIUM [Concomitant]
     Active Substance: MAGNESIUM
  9. DILTIAZEM HCL ER [Concomitant]
     Active Substance: DILTIAZEM HYDROCHLORIDE
  10. VITAMIN D [Concomitant]
     Active Substance: VITAMIN D NOS

REACTIONS (4)
  - Eye pruritus [None]
  - Therapy cessation [None]
  - Adverse drug reaction [None]
  - Lacrimation increased [None]

NARRATIVE: CASE EVENT DATE: 20190517
